FAERS Safety Report 7803855-3 (Version None)
Quarter: 2011Q4

REPORT INFORMATION
  Report Type: 
  Country: None (occurrence: None)
  Receive Date: 20111010
  Receipt Date: 20110929
  Transmission Date: 20120403
  Serious: Yes (Other)
  Sender: FDA-Public Use
  Company Number: DE-JNJFOC-20110912201

PATIENT
  Age: 64 Year
  Sex: Male

DRUGS (3)
  1. STELARA [Suspect]
     Indication: PRODUCT USED FOR UNKNOWN INDICATION
     Route: 058
  2. MARCUMAR [Concomitant]
     Route: 065
  3. ANTIARRHYTHMIC [Concomitant]
     Indication: ARRHYTHMIA
     Route: 065

REACTIONS (3)
  - APHASIA [None]
  - TRANSIENT ISCHAEMIC ATTACK [None]
  - HEADACHE [None]
